FAERS Safety Report 4276121-3 (Version None)
Quarter: 2004Q1

REPORT INFORMATION
  Report Type: 
  Country: None (occurrence: None)
  Receive Date: 20040121
  Receipt Date: 20031010
  Transmission Date: 20041129
  Serious: No
  Sender: FDA-Public Use
  Company Number: US-GLAXOSMITHKLINE-A0429804A

PATIENT
  Age: 50 Year
  Sex: Male

DRUGS (1)
  1. VALTREX [Suspect]
     Dosage: 500MG PER DAY
     Route: 048

REACTIONS (1)
  - FEELING HOT [None]
